FAERS Safety Report 23586719 (Version 1)
Quarter: 2024Q1

REPORT INFORMATION
  Report Type: Spontaneous
  Country: US (occurrence: US)
  Receive Date: 20240301
  Receipt Date: 20240301
  Transmission Date: 20240409
  Serious: No
  Sender: FDA-Public Use
  Company Number: US-PFIZER INC-202400053217

PATIENT
  Age: 70 Year
  Sex: Female
  Weight: 89.81 kg

DRUGS (1)
  1. PAXLOVID [Suspect]
     Active Substance: NIRMATRELVIR\RITONAVIR
     Indication: COVID-19 treatment
     Dosage: [NIRMATRELVIR 300 MG]/[RITONAVIR 100 MG]
     Dates: start: 20240226

REACTIONS (11)
  - Nervousness [Unknown]
  - Feeling abnormal [Unknown]
  - Abdominal discomfort [Unknown]
  - Tremor [Unknown]
  - Brain fog [Unknown]
  - Dizziness [Recovering/Resolving]
  - Dysgeusia [Unknown]
  - Diarrhoea [Recovered/Resolved]
  - Malaise [Unknown]
  - Irritability [Unknown]
  - Vomiting [Recovered/Resolved]

NARRATIVE: CASE EVENT DATE: 20240201
